FAERS Safety Report 9859047 (Version 2)
Quarter: 2014Q3

REPORT INFORMATION
  Report Type: Spontaneous
  Country: US (occurrence: None)
  Receive Date: 20140129
  Receipt Date: 20140822
  Transmission Date: 20150326
  Serious: Yes (Hospitalization)
  Sender: FDA-Public Use
  Company Number: 2014-US-000631

PATIENT
  Age: 66 Year
  Sex: Male
  Weight: 59 kg

DRUGS (3)
  1. XYREM [Suspect]
     Active Substance: SODIUM OXYBATE
     Indication: HYPERSOMNIA
     Dosage: 2.25 G, BID, ORAL
     Route: 048
     Dates: start: 201207
  2. ATENOLOL (ATENOLOL) [Concomitant]
     Active Substance: ATENOLOL
  3. FENTANYL (FENTANYL CITRATE) INJECTION [Concomitant]
     Active Substance: FENTANYL

REACTIONS (6)
  - Ulcer [None]
  - Intestinal stenosis [None]
  - Pyrexia [None]
  - Anaemia [None]
  - Off label use [None]
  - Duodenal perforation [None]

NARRATIVE: CASE EVENT DATE: 20140102
